FAERS Safety Report 7380458-9 (Version None)
Quarter: 2011Q1

REPORT INFORMATION
  Report Type: 
  Country: None (occurrence: None)
  Receive Date: 20110329
  Receipt Date: 20110316
  Transmission Date: 20110831
  Serious: Yes (Death)
  Sender: FDA-Public Use
  Company Number: US-CELGENEUS-163-21880-11031971

PATIENT
  Sex: Male
  Weight: 78.088 kg

DRUGS (3)
  1. REVLIMID [Suspect]
     Indication: MULTIPLE MYELOMA
     Dosage: 25 MILLIGRAM
     Route: 048
     Dates: start: 20100126, end: 20101201
  2. REVLIMID [Suspect]
     Dosage: 15 MILLIGRAM
     Route: 048
     Dates: start: 20110201, end: 20110201
  3. REVLIMID [Suspect]
     Dosage: 15-25MG
     Route: 048
     Dates: start: 20101201, end: 20110101

REACTIONS (1)
  - DEATH [None]
